FAERS Safety Report 25714237 (Version 1)
Quarter: 2025Q3

REPORT INFORMATION
  Report Type: Spontaneous
  Country: EU (occurrence: EU)
  Receive Date: 20250822
  Receipt Date: 20250822
  Transmission Date: 20251021
  Serious: Yes (Hospitalization)
  Sender: AUROBINDO
  Company Number: EU-MINISAL02-1053076

PATIENT
  Age: 49 Year
  Sex: Male

DRUGS (2)
  1. IBUPROFEN [Suspect]
     Active Substance: IBUPROFEN
     Indication: Pain
     Dosage: 2 DOSAGE FORM, ONCE A DAY ( TOOK TWO DOSES OF IBUPROFEN ON 25/02/2025.)
     Route: 048
     Dates: start: 20250225, end: 20250225
  2. AUGMENTIN [Suspect]
     Active Substance: AMOXICILLIN\CLAVULANATE POTASSIUM
     Indication: Tooth infection
     Dosage: 2 DOSAGE FORM, ONCE A DAY ( TAKEN TWO DOSES OF AMOXICILLIN/CLAVULANIC ACID ON 25/02/2025.)
     Route: 048
     Dates: start: 20250225, end: 20250225

REACTIONS (1)
  - Lip oedema [Recovering/Resolving]

NARRATIVE: CASE EVENT DATE: 20250225
